FAERS Safety Report 23924035 (Version 1)
Quarter: 2024Q2

REPORT INFORMATION
  Report Type: Spontaneous
  Country: US (occurrence: None)
  Receive Date: 20240530
  Receipt Date: 20240530
  Transmission Date: 20240716
  Serious: Yes (Hospitalization)
  Sender: FDA-Public Use
  Company Number: None

PATIENT
  Sex: Male

DRUGS (1)
  1. DEFERASIROX [Suspect]
     Active Substance: DEFERASIROX
     Indication: Autoimmune lymphoproliferative syndrome
     Dosage: 720MG 1 TIME DAILY ORAL?
     Route: 048
     Dates: start: 202206

REACTIONS (2)
  - Constipation [None]
  - Dyspnoea [None]
